FAERS Safety Report 21473485 (Version 1)
Quarter: 2022Q4

REPORT INFORMATION
  Report Type: Spontaneous
  Country: US (occurrence: US)
  Receive Date: 20221018
  Receipt Date: 20221018
  Transmission Date: 20230113
  Serious: No
  Sender: FDA-Public Use
  Company Number: US-KARYOPHARM-2022KPT001208

PATIENT

DRUGS (9)
  1. XPOVIO [Suspect]
     Active Substance: SELINEXOR
     Indication: Plasma cell myeloma
     Dosage: 80 MG, 2X/WEEK
     Route: 048
     Dates: start: 20220920
  2. ASPIRIN [Concomitant]
     Active Substance: ASPIRIN
  3. DECADRON [Concomitant]
     Active Substance: DEXAMETHASONE
  4. FAMOTIDINE [Concomitant]
     Active Substance: FAMOTIDINE
  5. NITROGLYCERIN [Concomitant]
     Active Substance: NITROGLYCERIN
  6. PANTOPRAZOLE [Concomitant]
     Active Substance: PANTOPRAZOLE
  7. PERCOCET [Concomitant]
     Active Substance: ACETAMINOPHEN\OXYCODONE HYDROCHLORIDE
  8. POMALYST [Concomitant]
     Active Substance: POMALIDOMIDE
  9. SUCRALFATE [Concomitant]
     Active Substance: SUCRALFATE

REACTIONS (1)
  - Headache [Not Recovered/Not Resolved]

NARRATIVE: CASE EVENT DATE: 20221001
